FAERS Safety Report 7377039-X (Version None)
Quarter: 2011Q1

REPORT INFORMATION
  Report Type: 
  Country: None (occurrence: None)
  Receive Date: 20110328
  Receipt Date: 20110316
  Transmission Date: 20110831
  Serious: No
  Sender: FDA-Public Use
  Company Number: US-BIOGENIDEC-2011BI007149

PATIENT
  Age: 28 Year
  Sex: Female

DRUGS (2)
  1. POPIRANETE (NOS) [Concomitant]
     Indication: MIGRAINE
     Dates: start: 19900101
  2. TYSABRI [Suspect]
     Indication: MULTIPLE SCLEROSIS
     Route: 042
     Dates: start: 20110211

REACTIONS (4)
  - NAUSEA [None]
  - LETHARGY [None]
  - HEADACHE [None]
  - ABNORMAL DREAMS [None]
